FAERS Safety Report 4925748-1 (Version None)
Quarter: 2006Q1

REPORT INFORMATION
  Report Type: 
  Country: None (occurrence: None)
  Receive Date: 20060228
  Receipt Date: 20050202
  Transmission Date: 20060701
  Serious: No
  Sender: FDA-Public Use
  Company Number: US-GLAXOSMITHKLINE-A0543527A

PATIENT
  Age: 35 Year
  Sex: Female

DRUGS (2)
  1. LAMICTAL [Suspect]
     Dosage: 100MG TWICE PER DAY
     Route: 048
     Dates: start: 20050101
  2. DEPAKOTE [Concomitant]

REACTIONS (3)
  - ORAL MUCOSAL BLISTERING [None]
  - RASH ERYTHEMATOUS [None]
  - RASH PUSTULAR [None]
